FAERS Safety Report 16521456 (Version 1)
Quarter: 2019Q3

REPORT INFORMATION
  Report Type: Spontaneous
  Country: US (occurrence: US)
  Receive Date: 20190703
  Receipt Date: 20190703
  Transmission Date: 20191004
  Serious: Yes (Other)
  Sender: FDA-Public Use
  Company Number: US-PFIZER INC-2019282706

PATIENT
  Sex: Female

DRUGS (3)
  1. ADVIL [Suspect]
     Active Substance: IBUPROFEN
     Indication: ENDODONTIC PROCEDURE
     Dosage: 400 MG, UNK (50 COATED TABLETS IN THE BOTTLE. 200MG, SHE TOOK 2 OF THOSE)
     Dates: end: 201906
  2. CLINDAMYCIN HCL [Concomitant]
     Active Substance: CLINDAMYCIN HYDROCHLORIDE
     Dosage: 300 MG, UNK
  3. TYLENOL [Suspect]
     Active Substance: ACETAMINOPHEN
     Indication: ENDODONTIC PROCEDURE
     Dosage: 500 MG, UNK
     Dates: end: 201906

REACTIONS (2)
  - Dizziness [Recovered/Resolved]
  - Syncope [Recovered/Resolved]

NARRATIVE: CASE EVENT DATE: 20190620
